FAERS Safety Report 8960143 (Version 2)
Quarter: 2014Q1

REPORT INFORMATION
  Report Type: Report from Study
  Country: CA (occurrence: CA)
  Receive Date: 20121211
  Receipt Date: 20140328
  Transmission Date: 20141002
  Serious: Yes (Hospitalization, Other)
  Sender: FDA-Public Use
  Company Number: CA-TEVA-375281USA

PATIENT
  Age: 68 Year
  Sex: Male
  Weight: 101 kg

DRUGS (12)
  1. BENDAMUSTINE [Suspect]
     Indication: NON-HODGKIN^S LYMPHOMA
     Dosage: 7.5714 MILLIGRAM DAILY;
     Route: 042
     Dates: start: 20111219, end: 20120523
  2. PMS-METFORMIN [Concomitant]
     Indication: DIABETES MELLITUS
     Dates: start: 2009, end: 20120926
  3. ASAPHEN [Concomitant]
     Dates: start: 2008, end: 20120926
  4. ATORVASTATIN [Concomitant]
     Indication: DYSLIPIDAEMIA
     Dates: start: 2003, end: 20120926
  5. COZAAR [Concomitant]
     Indication: HYPERTENSION
     Dates: start: 2001, end: 20120926
  6. AMLODIPINE [Concomitant]
     Indication: HYPERTENSION
     Dates: start: 2001, end: 20120926
  7. ARTHROTEC [Concomitant]
     Indication: OSTEOARTHRITIS
     Dates: start: 2008, end: 20120926
  8. SANDOZ-MEDO PROPRIOL S.R. [Concomitant]
     Indication: HYPERTENSION
     Dates: start: 2011, end: 20120926
  9. NEXIUM [Concomitant]
     Dates: start: 2006, end: 20120926
  10. FLOMAX [Concomitant]
     Dates: start: 2002, end: 20120926
  11. VALTREX [Concomitant]
     Dates: start: 20120213, end: 20120926
  12. AVELOX [Concomitant]
     Dates: start: 20120726, end: 20120804

REACTIONS (2)
  - Central nervous system lesion [Not Recovered/Not Resolved]
  - Hyperthermia [Not Recovered/Not Resolved]
